FAERS Safety Report 14156494 (Version 1)
Quarter: 2017Q4

REPORT INFORMATION
  Report Type: Spontaneous
  Country: US (occurrence: US)
  Receive Date: 20171103
  Receipt Date: 20171103
  Transmission Date: 20180321
  Serious: Yes (Death, Other)
  Sender: FDA-Public Use
  Company Number: US-ROCHE-2016724

PATIENT
  Age: 36 Year
  Sex: Male

DRUGS (22)
  1. NALOXONE [Suspect]
     Active Substance: NALOXONE
     Route: 060
     Dates: start: 20140609
  2. DILAUDID [Concomitant]
     Active Substance: HYDROMORPHONE HYDROCHLORIDE
     Route: 065
  3. BUPRENORPHINE HYDROCHLORIDE. [Suspect]
     Active Substance: BUPRENORPHINE HYDROCHLORIDE
     Route: 060
     Dates: start: 20140717
  4. NALOXONE [Suspect]
     Active Substance: NALOXONE
     Route: 060
     Dates: start: 20140527
  5. CLONAZEPAM. [Suspect]
     Active Substance: CLONAZEPAM
     Indication: PRODUCT USED FOR UNKNOWN INDICATION
     Route: 065
  6. BUPRENORPHINE HYDROCHLORIDE. [Suspect]
     Active Substance: BUPRENORPHINE HYDROCHLORIDE
     Indication: PRODUCT USED FOR UNKNOWN INDICATION
     Dosage: 4 ML IN 4 SYRINGES
     Route: 060
     Dates: start: 20140320
  7. BUPRENORPHINE HYDROCHLORIDE. [Suspect]
     Active Substance: BUPRENORPHINE HYDROCHLORIDE
     Route: 060
     Dates: start: 20140527, end: 2014
  8. NALOXONE [Suspect]
     Active Substance: NALOXONE
     Route: 060
     Dates: start: 20140421
  9. NALOXONE [Suspect]
     Active Substance: NALOXONE
     Route: 060
     Dates: start: 20140717
  10. SEROQUEL XR [Concomitant]
     Active Substance: QUETIAPINE FUMARATE
     Route: 065
  11. PERCOCET [Concomitant]
     Active Substance: ACETAMINOPHEN\OXYCODONE HYDROCHLORIDE
     Route: 065
  12. NALOXONE [Suspect]
     Active Substance: NALOXONE
     Indication: PRODUCT USED FOR UNKNOWN INDICATION
     Dosage: 4 ML IN 4 SYRINGES
     Route: 060
     Dates: start: 20140320
  13. SUBOXONE [Concomitant]
     Active Substance: BUPRENORPHINE HYDROCHLORIDE\NALOXONE HYDROCHLORIDE
     Route: 065
  14. VALIUM [Suspect]
     Active Substance: DIAZEPAM
     Indication: PRODUCT USED FOR UNKNOWN INDICATION
     Route: 065
     Dates: end: 20140805
  15. HEROIN [Suspect]
     Active Substance: DIAMORPHINE
     Indication: PRODUCT USED FOR UNKNOWN INDICATION
     Route: 065
  16. NORCO [Concomitant]
     Active Substance: ACETAMINOPHEN\HYDROCODONE BITARTRATE
     Route: 065
  17. BUPRENORPHINE HYDROCHLORIDE. [Suspect]
     Active Substance: BUPRENORPHINE HYDROCHLORIDE
     Route: 060
     Dates: start: 20140325
  18. BUPRENORPHINE HYDROCHLORIDE. [Suspect]
     Active Substance: BUPRENORPHINE HYDROCHLORIDE
     Route: 060
     Dates: start: 20140421, end: 2014
  19. BUPRENORPHINE HYDROCHLORIDE. [Suspect]
     Active Substance: BUPRENORPHINE HYDROCHLORIDE
     Route: 060
     Dates: start: 20140716
  20. BUPRENORPHINE HYDROCHLORIDE. [Suspect]
     Active Substance: BUPRENORPHINE HYDROCHLORIDE
     Route: 060
     Dates: start: 20140609, end: 2014
  21. NALOXONE [Suspect]
     Active Substance: NALOXONE
     Route: 060
     Dates: start: 20140325
  22. NALOXONE [Suspect]
     Active Substance: NALOXONE
     Route: 060
     Dates: start: 20140716

REACTIONS (4)
  - Product preparation error [Unknown]
  - Toxicity to various agents [Fatal]
  - Road traffic accident [Unknown]
  - Overdose [Fatal]

NARRATIVE: CASE EVENT DATE: 20140624
